FAERS Safety Report 25739982 (Version 1)
Quarter: 2025Q3

REPORT INFORMATION
  Report Type: Spontaneous
  Country: US (occurrence: US)
  Receive Date: 20250829
  Receipt Date: 20250829
  Transmission Date: 20251021
  Serious: No
  Sender: GLAXOSMITHKLINE
  Company Number: US-GSK-US2025AMR102424

PATIENT
  Sex: Female

DRUGS (2)
  1. ZEJULA [Suspect]
     Active Substance: NIRAPARIB
     Indication: Ovarian cancer
     Dosage: 200 MG, QD
     Dates: start: 202504
  2. CELEBREX [Suspect]
     Active Substance: CELECOXIB
     Indication: Product used for unknown indication

REACTIONS (4)
  - Abdominal distension [Unknown]
  - Flatulence [Unknown]
  - Muscle spasms [Unknown]
  - Pain [Unknown]
